FAERS Safety Report 11121564 (Version 1)
Quarter: 2015Q2

REPORT INFORMATION
  Report Type: Spontaneous
  Country: FR (occurrence: FR)
  Receive Date: 20150519
  Receipt Date: 20150519
  Transmission Date: 20150821
  Serious: Yes (Death, Hospitalization)
  Sender: FDA-Public Use
  Company Number: FR-SA-2015SA064495

PATIENT
  Age: 79 Year
  Sex: Female

DRUGS (9)
  1. LOVENOX [Suspect]
     Active Substance: ENOXAPARIN SODIUM
     Dosage: 4000 IU ANTI-XA/ 0.4 ML, SOLUTION FOR INJECTION IN PRE-FILLED SYRINGE
     Route: 048
     Dates: end: 20150405
  2. MIMPARA [Suspect]
     Active Substance: CINACALCET HYDROCHLORIDE
     Indication: HYPERCALCAEMIA
     Dosage: STRENGTH: 30MG
     Route: 048
     Dates: start: 20150303, end: 20150418
  3. DIFFU K [Suspect]
     Active Substance: POTASSIUM CHLORIDE
     Route: 048
     Dates: start: 201503, end: 20150418
  4. UVEDOSE [Concomitant]
     Active Substance: CHOLECALCIFEROL
     Dosage: 100000 IU, ORAL SOLUTION IN AMPOULE?1 AMPOULE PER WEEK FOR 3 WEEKS THEN 1 AMPOULE PER MONTH
     Route: 048
  5. TRIFLUCAN [Concomitant]
     Active Substance: FLUCONAZOLE
  6. FLAGYL [Suspect]
     Active Substance: METRONIDAZOLE\METRONIDAZOLE HYDROCHLORIDE
     Indication: CLOSTRIDIUM DIFFICILE COLITIS
     Route: 048
     Dates: start: 20150326, end: 20150401
  7. PREVISCAN [Suspect]
     Active Substance: FLUINDIONE
     Dosage: STRENGTH: 20MG?FORM:SCORED TABLET.
     Route: 048
     Dates: start: 20150405
  8. PAROXETINE [Concomitant]
     Active Substance: PAROXETINE\PAROXETINE HYDROCHLORIDE
  9. VANCOMYCIN [Concomitant]
     Active Substance: VANCOMYCIN
     Dates: start: 20150313

REACTIONS (5)
  - Hyperphosphataemia [Fatal]
  - Hypocalcaemia [Fatal]
  - Acute kidney injury [Fatal]
  - Hyperkalaemia [Fatal]
  - Hepatocellular injury [Fatal]

NARRATIVE: CASE EVENT DATE: 20150417
